FAERS Safety Report 22635835 (Version 1)
Quarter: 2023Q2

REPORT INFORMATION
  Report Type: Spontaneous
  Country: FR (occurrence: FR)
  Receive Date: 20230623
  Receipt Date: 20230623
  Transmission Date: 20230721
  Serious: Yes (Hospitalization)
  Sender: FDA-Public Use
  Company Number: FR-PFM-2023-03502

PATIENT
  Age: 72 Year
  Sex: Female
  Weight: 72 kg

DRUGS (7)
  1. BRAFTOVI [Suspect]
     Active Substance: ENCORAFENIB
     Indication: Colorectal cancer metastatic
     Dosage: 300 MG DAILY
     Route: 048
     Dates: start: 20230214, end: 20230219
  2. BRAFTOVI [Suspect]
     Active Substance: ENCORAFENIB
     Indication: BRAF gene mutation
     Dosage: 150 MG DAILY (2 TABLETS/ DAY)
     Route: 048
     Dates: start: 20230224
  3. CETUXIMAB [Concomitant]
     Active Substance: CETUXIMAB
     Indication: Colorectal cancer metastatic
     Dosage: UNK
     Route: 065
     Dates: start: 20230214
  4. CETUXIMAB [Concomitant]
     Active Substance: CETUXIMAB
     Indication: BRAF gene mutation
  5. FELODIPINE [Concomitant]
     Active Substance: FELODIPINE
     Dosage: 5 MG (CHRONIC TREATMENT)
     Route: 065
  6. RILMENIDINE [Concomitant]
     Active Substance: RILMENIDINE
     Dosage: 1 MG (CHRONIC TREATMENT)
     Route: 065
  7. AMITRIPTYLINE HYDROCHLORIDE [Concomitant]
     Active Substance: AMITRIPTYLINE HYDROCHLORIDE
     Dosage: 5-15 DROPS (CHRONIC TREATMENT)
     Route: 065

REACTIONS (5)
  - Myalgia [Recovered/Resolved]
  - Nausea [Unknown]
  - Muscle spasms [Unknown]
  - Product use issue [Unknown]
  - Off label use [Unknown]

NARRATIVE: CASE EVENT DATE: 20230215
